FAERS Safety Report 8577079-9 (Version None)
Quarter: 2012Q3

REPORT INFORMATION
  Report Type: 
  Country: None (occurrence: None)
  Receive Date: 20120807
  Receipt Date: 20120730
  Transmission Date: 20120928
  Serious: Yes (Hospitalization, Other)
  Sender: FDA-Public Use
  Company Number: JP-VERTEX PHARMACEUTICALS INC.-AE-2012-004092

PATIENT
  Age: 64 Year
  Sex: Female

DRUGS (15)
  1. CONIEL [Concomitant]
     Route: 048
  2. CELESTAMINE TAB [Concomitant]
     Route: 048
     Dates: start: 20120316
  3. REBETOL [Concomitant]
     Route: 048
     Dates: start: 20120321, end: 20120403
  4. REBETOL [Concomitant]
     Route: 048
     Dates: start: 20120404, end: 20120423
  5. ISOSORBIDE DINITRATE [Concomitant]
     Route: 048
  6. CONIEL [Concomitant]
     Route: 048
  7. REBETOL [Concomitant]
     Route: 048
     Dates: start: 20120228, end: 20120317
  8. TELAVIC [Suspect]
     Indication: HEPATITIS C
     Route: 048
     Dates: start: 20120131, end: 20120316
  9. ISOSORBIDE DINITRATE [Concomitant]
     Route: 048
  10. PEG-INTRON [Concomitant]
     Route: 058
  11. PEG-INTRON [Concomitant]
     Indication: HEPATITIS C
     Route: 058
     Dates: start: 20120131, end: 20120315
  12. REBETOL [Concomitant]
     Indication: HEPATITIS C
     Route: 048
     Dates: start: 20120131, end: 20120227
  13. REBETOL [Concomitant]
     Route: 048
     Dates: start: 20120424, end: 20120521
  14. REBETOL [Concomitant]
     Dates: start: 20120522
  15. FAMOTIDINE [Concomitant]
     Route: 048

REACTIONS (3)
  - HAEMOLYTIC ANAEMIA [None]
  - ANAEMIA [None]
  - RASH [None]
